FAERS Safety Report 13299471 (Version 3)
Quarter: 2017Q2

REPORT INFORMATION
  Report Type: Report from Study
  Country: ZA (occurrence: ZA)
  Receive Date: 20170306
  Receipt Date: 20170616
  Transmission Date: 20170830
  Serious: Yes (Death, Hospitalization, Other)
  Sender: FDA-Public Use
  Company Number: ZA-BAYER-2017-002479

PATIENT
  Age: 72 Year
  Sex: Male

DRUGS (1)
  1. NEXAVAR [Suspect]
     Active Substance: SORAFENIB
     Indication: HEPATOCELLULAR CARCINOMA
     Dosage: 200 MG, BID
     Dates: end: 201702

REACTIONS (9)
  - Loss of personal independence in daily activities [None]
  - Off label use [None]
  - Death [Fatal]
  - Hepatocellular carcinoma [None]
  - Diarrhoea [None]
  - Malaise [None]
  - Diarrhoea [None]
  - Asthenia [None]
  - Alpha 1 foetoprotein increased [None]

NARRATIVE: CASE EVENT DATE: 20161201
